FAERS Safety Report 9061426 (Version 2)
Quarter: 2013Q1

REPORT INFORMATION
  Report Type: Spontaneous
  Country: US (occurrence: None)
  Receive Date: 20130118
  Receipt Date: 20130124
  Transmission Date: 20140127
  Serious: Yes (Hospitalization)
  Sender: FDA-Public Use
  Company Number: ACO_33742_2013

PATIENT
  Sex: Female

DRUGS (1)
  1. AMPYRA (DALFAMPRIDINE) TABLET, 10MG [Suspect]
     Indication: PRODUCT USED FOR UNKNOWN INDICATION
     Route: 048
     Dates: end: 20130110

REACTIONS (9)
  - Pneumothorax [None]
  - Rib fracture [None]
  - Fall [None]
  - Gait disturbance [None]
  - Walking aid user [None]
  - Weight decreased [None]
  - Balance disorder [None]
  - Multiple sclerosis [None]
  - Inappropriate schedule of drug administration [None]
